FAERS Safety Report 9812647 (Version 2)
Quarter: 2014Q1

REPORT INFORMATION
  Report Type: Report from Study
  Country: US (occurrence: US)
  Receive Date: 20140113
  Receipt Date: 20140113
  Transmission Date: 20141002
  Serious: Yes (Other)
  Sender: FDA-Public Use
  Company Number: US-ROCHE-772109

PATIENT
  Age: 79 Year
  Sex: Male

DRUGS (3)
  1. VISMODEGIB [Suspect]
     Indication: SMALL CELL LUNG CANCER EXTENSIVE STAGE
     Dosage: 150 MG, QD, LAST DOSE PRIOR TO SAE ON 28 NOV 2010
     Route: 048
  2. CISPLATIN [Suspect]
     Indication: SMALL CELL LUNG CANCER EXTENSIVE STAGE
     Dosage: LAST DOSE PRIOR TO SAE 28 NOV 2010
     Route: 042
     Dates: start: 20100927
  3. ETOPOSIDE [Suspect]
     Indication: SMALL CELL LUNG CANCER EXTENSIVE STAGE
     Dosage: LAST DOSE PRIOR TO SAE 28 NOV 2010
     Route: 042
     Dates: start: 20100927

REACTIONS (1)
  - Dermatitis acneiform [Unknown]
